FAERS Safety Report 11120840 (Version 1)
Quarter: 2015Q2

REPORT INFORMATION
  Report Type: Spontaneous
  Country: US (occurrence: US)
  Receive Date: 20150519
  Receipt Date: 20150519
  Transmission Date: 20150821
  Serious: No
  Sender: FDA-Public Use
  Company Number: US-B.I. PHARMACEUTICALS,INC./RIDGEFIELD-2015-BI-24479BP

PATIENT
  Sex: Female
  Weight: 71 kg

DRUGS (6)
  1. MAXZIDE [Concomitant]
     Active Substance: HYDROCHLOROTHIAZIDE\TRIAMTERENE
     Indication: PRODUCT USED FOR UNKNOWN INDICATION
     Route: 065
  2. MELATONIN [Concomitant]
     Active Substance: MELATONIN
     Indication: INSOMNIA
     Dosage: 10 MG
     Route: 065
  3. THIAZIDE [Concomitant]
     Active Substance: UNSPECIFIED INGREDIENT
     Indication: PRODUCT USED FOR UNKNOWN INDICATION
     Route: 065
  4. LISINOPRIL. [Concomitant]
     Active Substance: LISINOPRIL
     Indication: HYPERTENSION
     Route: 065
  5. ADVIL PM [Concomitant]
     Active Substance: DIPHENHYDRAMINE CITRATE\IBUPROFEN
     Indication: SLEEP DISORDER
     Dosage: 1000 MG
     Route: 065
  6. MICARDIS [Suspect]
     Active Substance: TELMISARTAN
     Indication: HYPERTENSION
     Route: 065
     Dates: start: 1982

REACTIONS (16)
  - Vein disorder [Unknown]
  - Unevaluable event [Unknown]
  - Photosensitivity reaction [Unknown]
  - Restlessness [Unknown]
  - Nervous system disorder [Unknown]
  - Hypersensitivity [Unknown]
  - Hypotension [Unknown]
  - Secretion discharge [Unknown]
  - Paraesthesia [Unknown]
  - Disturbance in attention [Unknown]
  - Constipation [Unknown]
  - Gout [Unknown]
  - Vasodilatation [Unknown]
  - Pruritus [Unknown]
  - Tongue dry [Unknown]
  - Eye disorder [Unknown]

NARRATIVE: CASE EVENT DATE: 1982
